FAERS Safety Report 9836612 (Version 1)
Quarter: 2013Q4

REPORT INFORMATION
  Report Type: Spontaneous
  Country: US (occurrence: None)
  Receive Date: 20131120
  Receipt Date: 20131120
  Transmission Date: 20140711
  Serious: Yes (Other)
  Sender: FDA-Public Use
  Company Number: 1000049582

PATIENT
  Sex: Female

DRUGS (1)
  1. VIIBRYD [Suspect]
     Indication: ANXIETY
     Dosage: 10MG (10MG, 1 IN 1D) ORAL
     Route: 048
     Dates: start: 201308

REACTIONS (6)
  - Nausea [None]
  - Dizziness [None]
  - Hyperhidrosis [None]
  - Muscle twitching [None]
  - Cyst [None]
  - Off label use [None]
